FAERS Safety Report 6108633-1 (Version None)
Quarter: 2009Q1

REPORT INFORMATION
  Report Type: 
  Country: None (occurrence: None)
  Receive Date: 20090305
  Receipt Date: 20090226
  Transmission Date: 20090719
  Serious: Yes (Hospitalization)
  Sender: FDA-Public Use
  Company Number: TCI2009A00668

PATIENT
  Age: 72 Year
  Sex: Male

DRUGS (5)
  1. ACTOS [Suspect]
     Indication: TYPE 2 DIABETES MELLITUS
     Dosage: 15MG (15MG)
     Route: 048
     Dates: start: 20080220, end: 20080605
  2. SULFONAMIDES, UREA DERIVATIVES [Concomitant]
  3. ANGIOTENSIN II ANTAGONIST [Concomitant]
  4. EISCOSAPENTAENOIC ACID [Concomitant]
  5. ANTITHROMBOTIC AGENTS [Concomitant]

REACTIONS (4)
  - ANGINA PECTORIS [None]
  - DYSPNOEA [None]
  - FATIGUE [None]
  - PALPITATIONS [None]
